FAERS Safety Report 12182820 (Version 1)
Quarter: 2016Q1

REPORT INFORMATION
  Report Type: Spontaneous
  Country: FR (occurrence: FR)
  Receive Date: 20160316
  Receipt Date: 20160316
  Transmission Date: 20160526
  Serious: Yes (Hospitalization)
  Sender: FDA-Public Use
  Company Number: FR-ASTRAZENECA-2016SE27142

PATIENT
  Age: 27401 Day
  Sex: Female

DRUGS (5)
  1. INEXIUM [Suspect]
     Active Substance: ESOMEPRAZOLE
     Route: 048
     Dates: start: 20060101, end: 20160120
  2. KARDEGIC [Suspect]
     Active Substance: ASPIRIN LYSINE
     Indication: HYPERTENSIVE HEART DISEASE
     Route: 048
     Dates: start: 20140101
  3. DEPAKOTE [Suspect]
     Active Substance: DIVALPROEX SODIUM
     Indication: PSYCHOTIC DISORDER
     Route: 048
     Dates: start: 20120101
  4. XEROQUEL [Suspect]
     Active Substance: QUETIAPINE FUMARATE
     Indication: PSYCHOTIC DISORDER
     Route: 048
     Dates: start: 20150101
  5. LASILIX [Suspect]
     Active Substance: FUROSEMIDE
     Indication: HYPERTENSIVE HEART DISEASE
     Route: 048
     Dates: start: 20120101

REACTIONS (2)
  - Anaemia [Unknown]
  - Colitis microscopic [Recovering/Resolving]

NARRATIVE: CASE EVENT DATE: 20151208
